FAERS Safety Report 12995586 (Version 4)
Quarter: 2017Q1

REPORT INFORMATION
  Report Type: Spontaneous
  Country: PR (occurrence: US)
  Receive Date: 20161202
  Receipt Date: 20170223
  Transmission Date: 20170428
  Serious: Yes (Death, Other)
  Sender: FDA-Public Use
  Company Number: PR-GLAXOSMITHKLINE-US2016GSK178939

PATIENT
  Sex: Female

DRUGS (2)
  1. ADEMPAS [Suspect]
     Active Substance: RIOCIGUAT
     Indication: PULMONARY HYPERTENSION
  2. BENLYSTA [Suspect]
     Active Substance: BELIMUMAB
     Indication: SYSTEMIC LUPUS ERYTHEMATOSUS
     Dosage: UNK, CYC
     Dates: start: 201606

REACTIONS (9)
  - Cardiolipin antibody [Unknown]
  - Adverse event [Unknown]
  - Nephropathy [Unknown]
  - Pulmonary hypertension [Fatal]
  - Systemic lupus erythematosus [Fatal]
  - Osteonecrosis [Unknown]
  - Death [Fatal]
  - Cor pulmonale [Fatal]
  - Proteinuria [Unknown]
